FAERS Safety Report 21972339 (Version 1)
Quarter: 2023Q1

REPORT INFORMATION
  Report Type: Spontaneous
  Country: US (occurrence: None)
  Receive Date: 20230207
  Receipt Date: 20230207
  Transmission Date: 20230418
  Serious: Yes (Death)
  Sender: FDA-Public Use
  Company Number: None

PATIENT
  Age: 71 Year
  Sex: Female

DRUGS (2)
  1. LYNPARZA [Suspect]
     Active Substance: OLAPARIB
     Indication: Gallbladder cancer
     Dosage: FREQUENCY : TWICE A DAY;?
     Route: 048
     Dates: start: 20221230, end: 20230125
  2. LYNPARZA [Suspect]
     Active Substance: OLAPARIB
     Indication: Bile duct cancer

REACTIONS (1)
  - Death [None]

NARRATIVE: CASE EVENT DATE: 20230126
